FAERS Safety Report 8220687-5 (Version None)
Quarter: 2012Q1

REPORT INFORMATION
  Report Type: 
  Country: None (occurrence: None)
  Receive Date: 20120320
  Receipt Date: 20120308
  Transmission Date: 20120608
  Serious: Yes (Hospitalization)
  Sender: FDA-Public Use
  Company Number: US-ELI_LILLY_AND_COMPANY-US201203003292

PATIENT
  Age: 44 Year
  Sex: Male

DRUGS (17)
  1. EFFIENT [Suspect]
     Indication: MYOCARDIAL INFARCTION
     Dosage: 10 MG, QD
     Dates: start: 20120222
  2. PRAVACHOL [Concomitant]
  3. LASIX [Concomitant]
  4. AMBIEN [Concomitant]
  5. CYMBALTA [Suspect]
     Indication: DEPRESSION
     Dosage: 30 MG, QD
     Dates: start: 20070101
  6. CYMBALTA [Suspect]
     Dosage: 180 MG, QD
     Dates: end: 20120201
  7. LOPRESSOR [Concomitant]
  8. RANEXA [Concomitant]
  9. POTASSIUM [Concomitant]
  10. FISH OIL [Concomitant]
  11. ASPIRIN [Concomitant]
  12. XANAX [Concomitant]
  13. CYMBALTA [Suspect]
     Dosage: 120 MG, QD
     Dates: start: 20120201
  14. LISINOPRIL [Concomitant]
  15. OMEPRAZOLE [Concomitant]
  16. LAMICTAL [Concomitant]
  17. CYMBALTA [Suspect]
     Dosage: 60 MG, QD

REACTIONS (10)
  - HYPOACUSIS [None]
  - VERTIGO [None]
  - VISUAL ACUITY REDUCED [None]
  - OVERDOSE [None]
  - THROMBOSIS [None]
  - MYOCARDIAL INFARCTION [None]
  - CARDIAC FAILURE CONGESTIVE [None]
  - ANXIETY [None]
  - TINNITUS [None]
  - DIZZINESS POSTURAL [None]
